FAERS Safety Report 17554255 (Version 1)
Quarter: 2020Q1

REPORT INFORMATION
  Report Type: Spontaneous
  Country: FR (occurrence: FR)
  Receive Date: 20200318
  Receipt Date: 20200318
  Transmission Date: 20200409
  Serious: Yes (Death)
  Sender: FDA-Public Use
  Company Number: FR-TEVA-2020-FR-1202352

PATIENT
  Age: 0 Day

DRUGS (6)
  1. CODOLIPRANE ADULTES, COMPRIM? S?CABLE [Suspect]
     Active Substance: ACETAMINOPHEN\CODEINE PHOSPHATE
     Indication: RHINITIS
     Dosage: UNSPECIFIED
     Route: 064
     Dates: start: 20200129
  2. MONAZOL, OVULE [Suspect]
     Active Substance: SERTACONAZOLE NITRATE
     Indication: VULVOVAGINAL MYCOTIC INFECTION
     Dosage: 1 DF
     Route: 067
     Dates: start: 20200129, end: 20200129
  3. MIFEGYNE [Suspect]
     Active Substance: MIFEPRISTONE
     Indication: ABORTION INDUCED
     Dosage: 1 DF
     Route: 064
     Dates: start: 20190903, end: 20190903
  4. PREDNISONE. [Suspect]
     Active Substance: PREDNISONE
     Indication: RHINITIS
     Dosage: UNSPECIFIED
     Route: 064
     Dates: start: 20200129, end: 20200131
  5. MISOONE 400 MICROGRAMMES, COMPRIM? [Suspect]
     Active Substance: MISOPROSTOL
     Indication: ABORTION INDUCED
     Dosage: 2 DF
     Route: 064
     Dates: start: 20190906, end: 20190906
  6. TUSSIDANE 1,5 MG/ML, SIROP [Suspect]
     Active Substance: DEXTROMETHORPHAN HYDROBROMIDE
     Indication: RHINITIS
     Dosage: UNSPECIFIED
     Route: 064
     Dates: start: 20200129, end: 20200130

REACTIONS (1)
  - Foetal death [Fatal]

NARRATIVE: CASE EVENT DATE: 20200220
